FAERS Safety Report 8536097-7 (Version None)
Quarter: 2012Q3

REPORT INFORMATION
  Report Type: 
  Country: None (occurrence: None)
  Receive Date: 20120725
  Receipt Date: 20120713
  Transmission Date: 20120928
  Serious: Yes (Life-Threatening, Hospitalization)
  Sender: FDA-Public Use
  Company Number: FR-SANOFI-AVENTIS-2012SA049941

PATIENT
  Age: 89 Year
  Sex: Female

DRUGS (3)
  1. ASPEGIC 1000 [Suspect]
     Route: 048
     Dates: end: 20120201
  2. PLAVIX [Suspect]
     Route: 048
     Dates: end: 20120201
  3. SINTROM [Suspect]
     Route: 048
     Dates: end: 20120201

REACTIONS (4)
  - SHOCK HAEMORRHAGIC [None]
  - RECTAL HAEMORRHAGE [None]
  - HYPOTHROMBINAEMIA [None]
  - ANAEMIA [None]
